FAERS Safety Report 20414590 (Version 1)
Quarter: 2022Q1

REPORT INFORMATION
  Report Type: Spontaneous
  Country: CN (occurrence: CN)
  Receive Date: 20220202
  Receipt Date: 20220202
  Transmission Date: 20220423
  Serious: Yes (Life-Threatening)
  Sender: FDA-Public Use
  Company Number: CN-BoehringerIngelheim-2022-BI-151102

PATIENT
  Age: 63 Year
  Sex: Female
  Weight: 78 kg

DRUGS (3)
  1. ATROVENT [Suspect]
     Active Substance: IPRATROPIUM BROMIDE
     Indication: Atrial fibrillation
     Route: 055
     Dates: start: 20211105, end: 20211106
  2. BRICANYL [Suspect]
     Active Substance: TERBUTALINE SULFATE
     Indication: Atrial fibrillation
     Dosage: ATOMIZING SOLUTION
     Route: 055
     Dates: start: 20211105, end: 20211106
  3. BUDESONIDE [Suspect]
     Active Substance: BUDESONIDE
     Indication: Atrial fibrillation
     Route: 055
     Dates: start: 20211105, end: 20211106

REACTIONS (3)
  - Palpitations [Recovered/Resolved]
  - Tremor [Recovered/Resolved]
  - Off label use [Unknown]

NARRATIVE: CASE EVENT DATE: 20211106
